FAERS Safety Report 8363256-9 (Version None)
Quarter: 2012Q2

REPORT INFORMATION
  Report Type: 
  Country: None (occurrence: None)
  Receive Date: 20120516
  Receipt Date: 20110705
  Transmission Date: 20120825
  Serious: No
  Sender: FDA-Public Use
  Company Number: US-GLAXOSMITHKLINE-A0934945A

PATIENT
  Age: 89 Year
  Sex: Female

DRUGS (8)
  1. ANTI-CHOLESTEROL MEDICATION [Concomitant]
  2. BLOOD PRESSURE MEDICATION [Concomitant]
  3. ZOCOR [Concomitant]
  4. SINUS MEDICATION [Concomitant]
  5. PROZAC [Concomitant]
  6. VERAPAMIL [Concomitant]
  7. BACTROBAN [Suspect]
     Indication: NASAL DRYNESS
     Dosage: 1APP THREE TIMES PER DAY
     Route: 045
     Dates: end: 20110704
  8. POTASSIUM CHLORIDE [Concomitant]

REACTIONS (1)
  - RASH PRURITIC [None]
